FAERS Safety Report 5964604-7 (Version None)
Quarter: 2008Q4

REPORT INFORMATION
  Report Type: 
  Country: None (occurrence: None)
  Receive Date: 20081120
  Receipt Date: 20081113
  Transmission Date: 20090506
  Serious: Yes (Hospitalization)
  Sender: FDA-Public Use
  Company Number: 2008-04329

PATIENT
  Age: 71 Year
  Sex: Female
  Weight: 62 kg

DRUGS (13)
  1. VELCADE [Suspect]
     Indication: MULTIPLE MYELOMA
     Dosage: INTRAVENOUS
     Route: 042
     Dates: start: 20080609, end: 20081110
  2. CNT0328(CNT0328) VIAL [Suspect]
     Indication: MULTIPLE MYELOMA
     Dosage: INTRAVENOUS
     Route: 042
     Dates: start: 20080609, end: 20081110
  3. PLACEBO [Suspect]
     Indication: MULTIPLE MYELOMA
     Dosage: INTRAVENOUS
     Route: 042
     Dates: start: 20080609, end: 20081110
  4. DEXAMETHASONE TAB [Suspect]
     Indication: MULTIPLE MYELOMA
     Dosage: ORAL
     Route: 048
  5. HYDROCORTISONE [Concomitant]
  6. ACETAMINOPHEN [Concomitant]
  7. REASEC (ATROPINE SULFATE, DIPHENOXYLATE HYDROCHLORIDE) [Concomitant]
  8. CERUCAL (METOCLOPRAMIDE HYDROCHLORIDE) [Concomitant]
  9. TRANSTEC (BUPRENORPHINE) [Concomitant]
  10. TENSIOMIN (CAPTOPRIL) [Concomitant]
  11. FELODIPINE [Concomitant]
  12. MELOXICAM [Concomitant]
  13. ACETYLCYSTEINE [Concomitant]

REACTIONS (4)
  - CHILLS [None]
  - CONJUNCTIVITIS [None]
  - ERYSIPELAS [None]
  - HEADACHE [None]
